FAERS Safety Report 9201840 (Version 2)
Quarter: 2013Q2

REPORT INFORMATION
  Report Type: Report from Study
  Country: CA (occurrence: CA)
  Receive Date: 20130401
  Receipt Date: 20130529
  Transmission Date: 20140414
  Serious: Yes (Other)
  Sender: FDA-Public Use
  Company Number: CA-ROCHE-1170351

PATIENT
  Sex: Female
  Weight: 69.5 kg

DRUGS (13)
  1. ACTEMRA [Suspect]
     Indication: RHEUMATOID ARTHRITIS
     Route: 042
     Dates: start: 20110810
  2. METHOTREXATE [Concomitant]
     Route: 048
  3. FOLIC ACID [Concomitant]
     Route: 065
  4. CYTOTEC [Concomitant]
     Route: 065
  5. NAPROSYN EC [Concomitant]
     Route: 065
  6. FLEXERIL [Concomitant]
     Dosage: 5 - 10 MG AS NEEDED
     Route: 065
  7. QUININE [Concomitant]
     Route: 065
  8. TRAMACET [Concomitant]
  9. LYRICA [Concomitant]
     Route: 065
  10. ADVIL [Concomitant]
  11. TYLENOL [Concomitant]
     Route: 065
  12. NEXIUM [Concomitant]
     Route: 065
  13. TUMS [Concomitant]
     Route: 065

REACTIONS (3)
  - Muscle rupture [Not Recovered/Not Resolved]
  - Bursitis [Not Recovered/Not Resolved]
  - Pain in extremity [Not Recovered/Not Resolved]
